FAERS Safety Report 19705806 (Version 2)
Quarter: 2021Q3

REPORT INFORMATION
  Report Type: Spontaneous
  Country: MX (occurrence: MX)
  Receive Date: 20210817
  Receipt Date: 20210825
  Transmission Date: 20211014
  Serious: Yes (Life-Threatening, Hospitalization)
  Sender: FDA-Public Use
  Company Number: MX-POPULATION COUNCIL-2021TPC000163

PATIENT
  Age: 17 Year
  Sex: Female

DRUGS (1)
  1. JADELLE [Suspect]
     Active Substance: LEVONORGESTREL
     Indication: CONTRACEPTION
     Route: 059
     Dates: start: 20210530, end: 20210624

REACTIONS (11)
  - Nausea [Recovering/Resolving]
  - Epilepsy [Recovering/Resolving]
  - Facial paralysis [Recovering/Resolving]
  - Consciousness fluctuating [Recovering/Resolving]
  - Headache [Recovering/Resolving]
  - Ischaemic stroke [Recovering/Resolving]
  - Malaise [Recovering/Resolving]
  - Haemodynamic instability [Unknown]
  - Vomiting [Recovering/Resolving]
  - Dyskinesia [Recovering/Resolving]
  - Intracranial pressure increased [Recovering/Resolving]

NARRATIVE: CASE EVENT DATE: 20210624
